FAERS Safety Report 7548016-0 (Version None)
Quarter: 2011Q2

REPORT INFORMATION
  Report Type: 
  Country: None (occurrence: None)
  Receive Date: 20110524
  Receipt Date: 20110228
  Transmission Date: 20111010
  Serious: No
  Sender: FDA-Public Use
  Company Number: 026623

PATIENT
  Sex: Male
  Weight: 70 kg

DRUGS (12)
  1. CIMZIA [Suspect]
     Indication: CROHN'S DISEASE
     Dosage: SUBCUTANEOUS, 400 MG 1X/2 WEEKS, ONE INJECTION SUBCUTANEOU
     Route: 058
     Dates: start: 20100616
  2. AZATHIOPRINE [Concomitant]
  3. ALLOPURINOL [Concomitant]
  4. VITAMIN B-12 [Concomitant]
  5. DEXAMETHASONE [Concomitant]
  6. ACCUTANE [Concomitant]
  7. FLUTICASONE PROPIONATE [Concomitant]
  8. FLORASTOR [Concomitant]
  9. PROBIOTICA [Concomitant]
  10. IMODIUM [Concomitant]
  11. FOLIC ACID [Concomitant]
  12. VITAMIN D [Concomitant]

REACTIONS (2)
  - MIGRAINE [None]
  - FATIGUE [None]
